FAERS Safety Report 10247372 (Version 1)
Quarter: 2014Q1

REPORT INFORMATION
  Report Type: Spontaneous
  Country: US (occurrence: None)
  Receive Date: 20140306
  Receipt Date: 20140306
  Transmission Date: 20141002
  Serious: Yes (Hospitalization)
  Sender: FDA-Public Use
  Company Number: 163-21880-13032782

PATIENT
  Age: 46 Year
  Sex: Male

DRUGS (2)
  1. REVLIMID [Suspect]
     Indication: PLASMA CELL MYELOMA
     Route: 048
     Dates: start: 201206, end: 20121121
  2. CYTOXAN (CYCLOPHOSPHAMIDE) (UNKNOWN) [Concomitant]

REACTIONS (2)
  - Gastrointestinal haemorrhage [None]
  - Plasma cell myeloma [None]
